FAERS Safety Report 12795504 (Version 2)
Quarter: 2016Q4

REPORT INFORMATION
  Report Type: Spontaneous
  Country: CH (occurrence: CH)
  Receive Date: 20160929
  Receipt Date: 20161011
  Transmission Date: 20170207
  Serious: Yes (Hospitalization, Other)
  Sender: FDA-Public Use
  Company Number: CH-ASTRAZENECA-2016SF01689

PATIENT
  Sex: Female
  Weight: 100 kg

DRUGS (14)
  1. CALCIMAGON D3 [Concomitant]
     Active Substance: CALCIUM\CHOLECALCIFEROL
     Dosage: 500/800, DAILY
     Route: 048
  2. PANTOZOL [Concomitant]
     Active Substance: PANTOPRAZOLE SODIUM
     Indication: PROPHYLAXIS
  3. LYNPARZA [Suspect]
     Active Substance: OLAPARIB
     Indication: OVARIAN CANCER
     Dosage: 8 TABLETS OF 50 MG IN THE MORNING AND IN THE EVENING
     Route: 048
     Dates: start: 20160708, end: 20160718
  4. METFORMIN [Concomitant]
     Active Substance: METFORMIN HYDROCHLORIDE
     Indication: TYPE 2 DIABETES MELLITUS
     Route: 048
  5. MST [Concomitant]
     Active Substance: MORPHINE SULFATE\NALTREXONE HYDROCHLORIDE
     Indication: PAIN
  6. ELTHROXIN [Concomitant]
     Indication: HYPOTHYROIDISM
     Dosage: 0.05 MG, 1.5
     Route: 048
  7. LYRICA [Concomitant]
     Active Substance: PREGABALIN
     Indication: PAIN
     Route: 048
  8. TRAJENTA [Concomitant]
     Active Substance: LINAGLIPTIN
     Indication: TYPE 2 DIABETES MELLITUS
  9. LYNPARZA [Suspect]
     Active Substance: OLAPARIB
     Indication: BRCA1 GENE MUTATION
     Dosage: 2 TABLETS OF 50 MG IN THE MORNING AND IN THE EVENING
     Route: 048
     Dates: start: 20160718, end: 20160811
  10. METHADONE [Concomitant]
     Active Substance: METHADONE HYDROCHLORIDE
     Indication: PAIN
  11. LYNPARZA [Suspect]
     Active Substance: OLAPARIB
     Indication: OVARIAN CANCER
     Dosage: 2 TABLETS OF 50 MG IN THE MORNING AND IN THE EVENING
     Route: 048
     Dates: start: 20160718, end: 20160811
  12. XARELTO [Concomitant]
     Active Substance: RIVAROXABAN
     Indication: ANTICOAGULANT THERAPY
  13. LYNPARZA [Suspect]
     Active Substance: OLAPARIB
     Indication: BRCA1 GENE MUTATION
     Dosage: 8 TABLETS OF 50 MG IN THE MORNING AND IN THE EVENING
     Route: 048
     Dates: start: 20160708, end: 20160718
  14. DEXAMETHASON [Concomitant]
     Active Substance: DEXAMETHASONE
     Route: 048

REACTIONS (5)
  - Hepatic steatosis [Unknown]
  - Diarrhoea [Unknown]
  - Nausea [Unknown]
  - Jaundice [Unknown]
  - Drug-induced liver injury [Not Recovered/Not Resolved]
